FAERS Safety Report 9348485 (Version 3)
Quarter: 2014Q3

REPORT INFORMATION
  Report Type: Report from Study
  Country: US (occurrence: US)
  Receive Date: 20130614
  Receipt Date: 20140905
  Transmission Date: 20150326
  Serious: Yes (Hospitalization, Other)
  Sender: FDA-Public Use
  Company Number: US-ASTRAZENECA-2013SE23046

PATIENT
  Age: 18431 Day
  Sex: Female

DRUGS (48)
  1. PLAVIX [Concomitant]
     Active Substance: CLOPIDOGREL BISULFATE
     Indication: CORONARY ARTERY DISEASE
     Route: 048
     Dates: start: 20130407
  2. VIIBRYD [Concomitant]
     Active Substance: VILAZODONE HYDROCHLORIDE
     Indication: DEPRESSION
     Route: 048
     Dates: start: 20130124
  3. MAGNESIA PHOS [Concomitant]
     Indication: MUSCLE SPASMS
     Route: 048
  4. RHUS TOX [Concomitant]
     Indication: MUSCLE SPASMS
     Route: 048
  5. NOVOLOG [Concomitant]
     Active Substance: INSULIN ASPART
     Indication: TYPE 2 DIABETES MELLITUS
     Route: 058
  6. CELL SAVER [Concomitant]
     Indication: DRUG THERAPY
     Route: 042
     Dates: start: 20130405, end: 20130405
  7. AZD6140 [Suspect]
     Active Substance: TICAGRELOR
     Indication: CORONARY ARTERY DISEASE
     Route: 048
     Dates: start: 20130129, end: 20130401
  8. HEPARIN [Concomitant]
     Active Substance: HEPARIN SODIUM
     Indication: DRUG THERAPY
     Route: 042
     Dates: start: 20130405, end: 20130405
  9. NICODERM CQ [Concomitant]
     Active Substance: NICOTINE
     Indication: SMOKING CESSATION THERAPY
     Route: 062
     Dates: start: 20130402
  10. HIGH K BLOOD CARDIOPLEGIA [Concomitant]
     Indication: DRUG THERAPY
     Route: 042
     Dates: start: 20130405, end: 20130405
  11. TRIAMETERENE/HCTZ [Concomitant]
     Active Substance: HYDROCHLOROTHIAZIDE\TRIAMTERENE
     Indication: OEDEMA
     Route: 048
  12. NAPROXEN. [Concomitant]
     Active Substance: NAPROXEN
     Indication: MUSCULOSKELETAL PAIN
     Route: 048
  13. PERIDEX [Concomitant]
     Active Substance: CHLORHEXIDINE GLUCONATE
     Indication: GINGIVITIS
     Route: 048
     Dates: start: 20130407, end: 20130413
  14. GRAPHALIUMPOLYLEDUMPAL [Concomitant]
     Indication: MUSCLE SPASMS
     Route: 048
  15. SODIUM BICARB [Concomitant]
     Indication: DRUG THERAPY
     Route: 042
     Dates: start: 20130405, end: 20130405
  16. AMIODARONE [Concomitant]
     Active Substance: AMIODARONE
     Indication: ARRHYTHMIA PROPHYLAXIS
     Route: 048
     Dates: start: 20130403, end: 20130417
  17. ACOITUM NAP [Concomitant]
     Indication: MUSCLE SPASMS
     Route: 048
  18. LISINOPRIL. [Concomitant]
     Active Substance: LISINOPRIL
     Indication: HYPERTENSION
     Route: 048
  19. MUCOUS RELIEF DM [Concomitant]
     Indication: SEASONAL ALLERGY
     Route: 048
  20. ALBUMIN [Concomitant]
     Active Substance: ALBUMIN (HUMAN)
     Indication: DRUG THERAPY
     Route: 042
     Dates: start: 20130405, end: 20130405
  21. LOW K BLOOD CARDIOPLEGIA [Concomitant]
     Indication: DRUG THERAPY
     Route: 042
     Dates: start: 20130405, end: 20130405
  22. ALBUTROL HHN [Concomitant]
     Indication: CHRONIC OBSTRUCTIVE PULMONARY DISEASE
  23. DULERA [Concomitant]
     Active Substance: FORMOTEROL FUMARATE DIHYDRATE\MOMETASONE FUROATE
     Indication: CHRONIC OBSTRUCTIVE PULMONARY DISEASE
     Route: 055
  24. VISCUM ALB [Concomitant]
     Indication: MUSCLE SPASMS
     Route: 048
  25. MAGNESIUM SULFATE [Concomitant]
     Active Substance: MAGNESIUM SULFATE
     Indication: DRUG THERAPY
     Route: 042
     Dates: start: 20130405, end: 20130405
  26. NITROGLYCERIN. [Concomitant]
     Active Substance: NITROGLYCERIN
     Indication: DRUG THERAPY
     Route: 042
     Dates: start: 20130405, end: 20130405
  27. METOPROLOL [Concomitant]
     Active Substance: METOPROLOL
     Indication: TACHYCARDIA
     Route: 048
  28. ASA [Concomitant]
     Active Substance: ASPIRIN
     Route: 048
     Dates: end: 20130127
  29. ZOCOR [Concomitant]
     Active Substance: SIMVASTATIN
     Indication: HYPERCHOLESTEROLAEMIA
     Route: 048
  30. LORATADINE. [Concomitant]
     Active Substance: LORATADINE
     Indication: SEASONAL ALLERGY
     Route: 048
  31. PLAVIX [Concomitant]
     Active Substance: CLOPIDOGREL BISULFATE
     Indication: CORONARY ARTERY DISEASE
     Route: 048
     Dates: end: 20130128
  32. NORMOSOL [Concomitant]
     Indication: DRUG THERAPY
     Route: 042
     Dates: start: 20130405, end: 20130405
  33. SPIRIVA [Concomitant]
     Active Substance: TIOTROPIUM BROMIDE MONOHYDRATE
     Indication: CHRONIC OBSTRUCTIVE PULMONARY DISEASE
     Route: 055
  34. PHAZYME [Concomitant]
     Active Substance: DIMETHICONE 410
     Indication: FLATULENCE
     Route: 048
     Dates: start: 20130402
  35. SOLU-MEDROL [Concomitant]
     Active Substance: METHYLPREDNISOLONE SODIUM SUCCINATE
     Indication: DRUG THERAPY
     Route: 042
     Dates: start: 20130405, end: 20130405
  36. NAPROXEN. [Concomitant]
     Active Substance: NAPROXEN
     Indication: HEADACHE
     Route: 048
  37. CINCHENA [Concomitant]
     Indication: MUSCLE SPASMS
     Route: 048
  38. LEVEMIR [Concomitant]
     Active Substance: INSULIN DETEMIR
     Indication: TYPE 2 DIABETES MELLITUS
     Route: 058
  39. QUININE SULFATE. [Concomitant]
     Active Substance: QUININE SULFATE
     Indication: MUSCLE SPASMS
     Route: 048
     Dates: start: 20130402
  40. MANNITOL. [Concomitant]
     Active Substance: MANNITOL
     Indication: PREMEDICATION
     Route: 042
     Dates: start: 20130405, end: 20130405
  41. AMICAR [Concomitant]
     Active Substance: AMINOCAPROIC ACID
     Indication: DRUG THERAPY
     Route: 042
     Dates: start: 20130405, end: 20130405
  42. NITROSTAT [Concomitant]
     Active Substance: NITROGLYCERIN
     Indication: CORONARY ARTERY DISEASE
     Route: 048
     Dates: start: 20130402
  43. MUPIROCIN. [Concomitant]
     Active Substance: MUPIROCIN
     Indication: PROMOTION OF WOUND HEALING
     Route: 061
     Dates: start: 20130406
  44. VISIPAQUE [Concomitant]
     Active Substance: IODIXANOL
     Indication: SCAN WITH CONTRAST
     Route: 042
     Dates: start: 20130402, end: 20130502
  45. NEOSYNEPHRINE [Concomitant]
     Active Substance: PHENYLEPHRINE HYDROCHLORIDE
     Indication: DRUG THERAPY
     Route: 042
     Dates: start: 20130405, end: 20130405
  46. CALCIUM CHLORIDE. [Concomitant]
     Active Substance: CALCIUM CHLORIDE
     Indication: DRUG THERAPY
     Route: 042
     Dates: start: 20130405, end: 20130405
  47. 0.9% NORMAL SALINE [Concomitant]
     Indication: DRUG THERAPY
     Route: 042
     Dates: start: 20130405, end: 20130405
  48. ASA [Concomitant]
     Active Substance: ASPIRIN
     Route: 048
     Dates: start: 20130128

REACTIONS (4)
  - Respiratory failure [Recovered/Resolved]
  - Coronary artery disease [Recovered/Resolved]
  - Coagulopathy [Recovered/Resolved]
  - Pneumonia [Recovered/Resolved]

NARRATIVE: CASE EVENT DATE: 20130327
